FAERS Safety Report 12776116 (Version 1)
Quarter: 2016Q3

REPORT INFORMATION
  Report Type: Spontaneous
  Country: US (occurrence: US)
  Receive Date: 20160923
  Receipt Date: 20160923
  Transmission Date: 20161109
  Serious: Yes (Hospitalization, Other)
  Sender: FDA-Public Use
  Company Number: US-BAXTER-2016BAX048241

PATIENT
  Age: 56 Year
  Sex: Female

DRUGS (32)
  1. ZYLOPRIM [Concomitant]
     Active Substance: ALLOPURINOL
     Indication: PRODUCT USED FOR UNKNOWN INDICATION
     Dosage: 3 TABLETS WITH FOOD
     Route: 048
  2. CEFTIN [Concomitant]
     Active Substance: CEFUROXIME AXETIL
     Indication: PRODUCT USED FOR UNKNOWN INDICATION
     Dosage: 2 TABLETS
     Route: 048
  3. METHOTREXATE. [Suspect]
     Active Substance: METHOTREXATE
     Indication: B-CELL TYPE ACUTE LEUKAEMIA
     Dosage: CYCLE 1, HYPER CVAD REGIMEN
     Route: 037
     Dates: start: 20130727, end: 20130912
  4. GRANULOCYTE COLONY-STIMULATING FACTOR [Suspect]
     Active Substance: GRANULOCYTE COLONY-STIMULATING FACTOR NOS
     Dosage: FLAG ARM
     Route: 065
     Dates: start: 20130912
  5. MERCAPTOPURINE. [Suspect]
     Active Substance: MERCAPTOPURINE
     Indication: CHEMOTHERAPY
     Dosage: 24 CYCLES OF POMP MAINTENANCE
     Route: 065
     Dates: start: 20131218, end: 20151116
  6. ATIVAN [Concomitant]
     Active Substance: LORAZEPAM
     Indication: ANXIETY
     Dosage: 1 TABLET EVERY 4 HOURS AS NEEDED
     Route: 048
  7. CYTARABINE. [Suspect]
     Active Substance: CYTARABINE
     Indication: B-CELL TYPE ACUTE LEUKAEMIA
     Dosage: CYCLE 1, HYPER CVAD REGIMEN
     Route: 037
     Dates: start: 20130727, end: 20130912
  8. CYTARABINE. [Suspect]
     Active Substance: CYTARABINE
     Dosage: FLAG ARM
     Route: 065
     Dates: start: 20130911
  9. FLUDARABINE [Suspect]
     Active Substance: FLUDARABINE PHOSPHATE
     Dosage: FLAG ARM
     Route: 065
     Dates: start: 20130912
  10. TOPROL XL [Concomitant]
     Active Substance: METOPROLOL SUCCINATE
     Indication: PRODUCT USED FOR UNKNOWN INDICATION
     Dosage: EXTENDED RELEASE TABLET, 0.5 TABS BY MOUTH
     Route: 048
  11. CYCLOPHOSPHAMIDE FOR INJECTION, USP [Suspect]
     Active Substance: CYCLOPHOSPHAMIDE
     Indication: B-CELL TYPE ACUTE LEUKAEMIA
     Dosage: CYCLE 1, HYPER CVAD REGIMEN
     Route: 065
     Dates: start: 20130727, end: 20130912
  12. VINCRISTINE [Suspect]
     Active Substance: VINCRISTINE
     Indication: MALIGNANT NEOPLASM PROGRESSION
     Dosage: 1 CYCLE, IFOSFAMIDE CONTAINING REGIMEN
     Route: 065
     Dates: start: 20130912, end: 20131115
  13. DEXAMETHASONE. [Suspect]
     Active Substance: DEXAMETHASONE
     Indication: B-CELL TYPE ACUTE LEUKAEMIA
     Dosage: CYCLE 1, HYPER CVAD REGIMEN
     Route: 065
     Dates: start: 20130727, end: 20130912
  14. CYTARABINE. [Suspect]
     Active Substance: CYTARABINE
     Dosage: CYCLE 2, HYPER CVAD REGIMEN
     Route: 065
     Dates: start: 20130727, end: 20130912
  15. FLUDARABINE [Suspect]
     Active Substance: FLUDARABINE PHOSPHATE
     Indication: B-CELL TYPE ACUTE LEUKAEMIA
     Dosage: FLAG ARM
     Route: 065
     Dates: start: 20130911
  16. ROXICODONE [Concomitant]
     Active Substance: OXYCODONE HYDROCHLORIDE
     Indication: PRODUCT USED FOR UNKNOWN INDICATION
     Dosage: 1 TABLET EVERY 4 HOURS AS NEEDED
     Route: 048
  17. VINCRISTINE [Suspect]
     Active Substance: VINCRISTINE
     Indication: CHEMOTHERAPY
     Dosage: 24 CYCLES OF POMP MAINTENANCE
     Route: 065
     Dates: start: 20131218, end: 20151116
  18. METHOTREXATE. [Suspect]
     Active Substance: METHOTREXATE
     Indication: CHEMOTHERAPY
     Dosage: 1 CYCLE, IFOSFAMIDE CONTAINING REGIMEN
     Route: 065
     Dates: start: 20130912, end: 20131115
  19. PEGASPARGASE [Suspect]
     Active Substance: PEGASPARGASE
     Indication: MALIGNANT NEOPLASM PROGRESSION
     Dosage: 1 CYCLE, IFOSFAMIDE CONTAINING REGIMEN
     Route: 065
     Dates: start: 20130912, end: 20131115
  20. BENADRYL [Concomitant]
     Active Substance: DIPHENHYDRAMINE HYDROCHLORIDE
     Indication: HYPERSENSITIVITY
     Dosage: EVERY 6 HOURS AS NEEDED
     Route: 048
  21. TEMOVATE [Concomitant]
     Active Substance: CLOBETASOL PROPIONATE
     Indication: PRODUCT USED FOR UNKNOWN INDICATION
     Route: 061
  22. IFOSFAMIDE FOR INJECTION [Suspect]
     Active Substance: IFOSFAMIDE
     Indication: MALIGNANT NEOPLASM PROGRESSION
     Dosage: ONE CYCLE
     Route: 065
     Dates: start: 20130912, end: 20131115
  23. DOXORUBICIN [Suspect]
     Active Substance: DOXORUBICIN
     Indication: B-CELL TYPE ACUTE LEUKAEMIA
     Dosage: CYCLE 1, HYPER CVAD REGIMEN
     Route: 065
     Dates: start: 20130727, end: 20130912
  24. METHOTREXATE. [Suspect]
     Active Substance: METHOTREXATE
     Dosage: 24 CYCLES OF POMP MAINTENANCE
     Route: 065
     Dates: start: 20131218, end: 20151116
  25. ZOVIRAX [Concomitant]
     Active Substance: ACYCLOVIR
     Indication: PRODUCT USED FOR UNKNOWN INDICATION
     Dosage: 1 TABLET
     Route: 048
  26. CYTARABINE. [Suspect]
     Active Substance: CYTARABINE
     Dosage: FLAG ARM
     Route: 065
     Dates: start: 20130912
  27. ETOPOSIDE. [Suspect]
     Active Substance: ETOPOSIDE
     Indication: MALIGNANT NEOPLASM PROGRESSION
     Dosage: 1 CYCLE, IFOSFAMIDE CONTAINING REGIMEN
     Route: 065
     Dates: start: 20130912, end: 20131115
  28. VINCRISTINE [Suspect]
     Active Substance: VINCRISTINE
     Indication: B-CELL TYPE ACUTE LEUKAEMIA
     Dosage: CYCLE 1, HYPER CVAD REGIMEN
     Route: 065
     Dates: start: 20130727, end: 20130912
  29. METHOTREXATE. [Suspect]
     Active Substance: METHOTREXATE
     Indication: MALIGNANT NEOPLASM PROGRESSION
     Dosage: CYCLE 2, HYPER CVAD REGIMEN
     Route: 065
     Dates: start: 20130727, end: 20130912
  30. GRANULOCYTE COLONY-STIMULATING FACTOR [Suspect]
     Active Substance: GRANULOCYTE COLONY-STIMULATING FACTOR NOS
     Indication: B-CELL TYPE ACUTE LEUKAEMIA
     Dosage: FLAG ARM
     Route: 065
     Dates: start: 20130911
  31. PREDNISONE. [Suspect]
     Active Substance: PREDNISONE
     Indication: CHEMOTHERAPY
     Dosage: 24 CYCLES OF POMP MAINTENANCE
     Route: 065
     Dates: start: 20131218, end: 20151116
  32. DIFLUCAN [Concomitant]
     Active Substance: FLUCONAZOLE
     Indication: PRODUCT USED FOR UNKNOWN INDICATION
     Dosage: 2 TABLETS
     Route: 048

REACTIONS (3)
  - Acute lymphocytic leukaemia recurrent [Unknown]
  - Malignant neoplasm progression [Unknown]
  - Blood bilirubin increased [Recovered/Resolved]

NARRATIVE: CASE EVENT DATE: 2013
